FAERS Safety Report 19320612 (Version 2)
Quarter: 2021Q2

REPORT INFORMATION
  Report Type: Report from Study
  Country: None (occurrence: CA)
  Receive Date: 20210528
  Receipt Date: 20210602
  Transmission Date: 20210717
  Serious: Yes (Hospitalization, Other)
  Sender: FDA-Public Use
  Company Number: CA-ABBVIE-21K-028-3923138-00

PATIENT
  Sex: Female

DRUGS (11)
  1. MCAL D400 [Concomitant]
     Indication: BONE DISORDER
     Dosage: 500/400MG
     Route: 048
  2. APO?TRIAZIDE [Concomitant]
     Active Substance: HYDROCHLOROTHIAZIDE\TRIAMTERENE
     Indication: HYPERTENSION
     Dosage: 25?50MG
     Route: 048
  3. ATORVASTATIN [Concomitant]
     Active Substance: ATORVASTATIN
     Indication: BLOOD CHOLESTEROL
     Route: 048
  4. HUMIRA [Suspect]
     Active Substance: ADALIMUMAB
     Indication: ANKYLOSING SPONDYLITIS
     Route: 058
     Dates: start: 20210121
  5. NALTREXONE [Concomitant]
     Active Substance: NALTREXONE
     Indication: BENIGN FAMILIAL PEMPHIGUS
     Route: 048
  6. BISOPROLOL [Concomitant]
     Active Substance: BISOPROLOL
     Indication: PALPITATIONS
     Route: 048
     Dates: start: 20201019
  7. APO?FLECAINIDE [Concomitant]
     Active Substance: FLECAINIDE ACETATE
     Indication: PALPITATIONS
     Route: 048
     Dates: start: 20201019
  8. RABEPRAZOLE [Concomitant]
     Active Substance: RABEPRAZOLE
     Indication: GASTRIC DISORDER
     Route: 048
     Dates: start: 20210107
  9. AMLODIPINE [Concomitant]
     Active Substance: AMLODIPINE BESYLATE
     Indication: PALPITATIONS
     Route: 048
     Dates: start: 20200619
  10. XARELTO [Concomitant]
     Active Substance: RIVAROXABAN
     Indication: PALPITATIONS
     Route: 048
     Dates: start: 20200129
  11. SORIATANE [Concomitant]
     Active Substance: ACITRETIN
     Indication: BENIGN FAMILIAL PEMPHIGUS
     Route: 048
     Dates: start: 20201108

REACTIONS (9)
  - Weight increased [Not Recovered/Not Resolved]
  - Burning sensation [Not Recovered/Not Resolved]
  - Osteoarthritis [Not Recovered/Not Resolved]
  - Pain [Not Recovered/Not Resolved]
  - Musculoskeletal pain [Not Recovered/Not Resolved]
  - Anaemia [Recovered/Resolved]
  - Arthritis [Unknown]
  - Gastric haemorrhage [Unknown]
  - Arthropathy [Not Recovered/Not Resolved]

NARRATIVE: CASE EVENT DATE: 2021
